FAERS Safety Report 7704097-2 (Version None)
Quarter: 2011Q3

REPORT INFORMATION
  Report Type: 
  Country: None (occurrence: None)
  Receive Date: 20110818
  Receipt Date: 20110815
  Transmission Date: 20111222
  Serious: Yes (Other)
  Sender: FDA-Public Use
  Company Number: 201110845

PATIENT
  Sex: Female

DRUGS (1)
  1. LIORESAL [Suspect]
     Indication: MUSCLE SPASTICITY
     Dosage: 1307.3 MCG, DAILY, INTRATHECAL FLEX
     Route: 037

REACTIONS (4)
  - SKIN DISORDER [None]
  - ISCHAEMIA [None]
  - DEVICE CONNECTION ISSUE [None]
  - MEDICAL DEVICE COMPLICATION [None]
